FAERS Safety Report 5950667-1 (Version None)
Quarter: 2008Q4

REPORT INFORMATION
  Report Type: 
  Country: None (occurrence: None)
  Receive Date: 20081022
  Receipt Date: 20080721
  Transmission Date: 20090506
  Serious: No
  Sender: FDA-Public Use
  Company Number: ALL1-2008-02063

PATIENT
  Sex: Female
  Weight: 21.8 kg

DRUGS (1)
  1. VYVANSE [Suspect]
     Indication: DISTURBANCE IN ATTENTION
     Dosage: 30 MG,1X/DAY:QD,ORAL
     Route: 048
     Dates: start: 20080624, end: 20080701

REACTIONS (3)
  - ANHEDONIA [None]
  - DECREASED APPETITE [None]
  - MOOD SWINGS [None]
